FAERS Safety Report 6869653-2 (Version None)
Quarter: 2010Q3

REPORT INFORMATION
  Report Type: 
  Country: None (occurrence: None)
  Receive Date: 20100721
  Receipt Date: 20100709
  Transmission Date: 20110219
  Serious: Yes (Hospitalization, Other)
  Sender: FDA-Public Use
  Company Number: 230036M10NLD

PATIENT
  Age: 45 Year
  Sex: Female
  Weight: 65 kg

DRUGS (8)
  1. REBIF [Suspect]
     Indication: RELAPSING-REMITTING MULTIPLE SCLEROSIS
     Dosage: SUBCUTANEOUS
     Route: 058
     Dates: start: 20050701
  2. CLONIDINE [Concomitant]
  3. PANTOPRAZOLE SODIUM [Concomitant]
  4. MOVICOLON (NULYTELY) [Concomitant]
  5. FOSAMAX [Concomitant]
  6. LYRICA [Concomitant]
  7. AROMASIN [Concomitant]
  8. SYMMETREL [Concomitant]

REACTIONS (21)
  - ADENOCARCINOMA [None]
  - BACK PAIN [None]
  - BACTERIAL INFECTION [None]
  - BREAST CANCER [None]
  - CERVICAL DISCHARGE [None]
  - CERVIX DISORDER [None]
  - EJECTION FRACTION DECREASED [None]
  - FATIGUE [None]
  - GAMMA-GLUTAMYLTRANSFERASE INCREASED [None]
  - HAEMATOCRIT INCREASED [None]
  - HAEMOGLOBIN INCREASED [None]
  - IMPAIRED WORK ABILITY [None]
  - INJECTION SITE ERYTHEMA [None]
  - METAPLASIA [None]
  - OSTEOPENIA [None]
  - PAIN IN EXTREMITY [None]
  - PLATELET COUNT INCREASED [None]
  - RED BLOOD CELL SEDIMENTATION RATE INCREASED [None]
  - STRESS [None]
  - UTERINE POLYP [None]
  - VISUAL IMPAIRMENT [None]
